FAERS Safety Report 8079695 (Version 3)
Quarter: 2013Q3

REPORT INFORMATION
  Report Type: Spontaneous
  Country: US (occurrence: US)
  Receive Date: 20110808
  Receipt Date: 20130724
  Transmission Date: 20140515
  Serious: Yes (Hospitalization, Other)
  Sender: FDA-Public Use
  Company Number: US-US-EMD SERONO, INC.-234466J08USA

PATIENT
  Age: 39 Year
  Sex: Female
  Weight: 91 kg

DRUGS (10)
  1. REBIF [Suspect]
     Indication: MULTIPLE SCLEROSIS
     Route: 058
     Dates: start: 20070629
  2. LOPRESSOR [Concomitant]
     Indication: HYPERTENSION
     Dates: start: 2004, end: 2010
  3. ZESTRIL [Concomitant]
     Indication: CARDIAC FAILURE CONGESTIVE
     Dates: start: 2004, end: 2010
  4. LEVOTHYROXINE [Concomitant]
     Indication: HYPOTHYROIDISM
     Dates: start: 1992
  5. EFFEXOR                            /01233801/ [Concomitant]
     Indication: MULTIPLE SCLEROSIS
     Dates: start: 2007
  6. NEURONTIN [Concomitant]
     Indication: MULTIPLE SCLEROSIS
     Dates: start: 2007
  7. PREDNISONE [Concomitant]
     Indication: DISEASE PROGRESSION
     Route: 048
  8. LASIX                              /00032602/ [Concomitant]
     Indication: CARDIAC FAILURE CONGESTIVE
     Dates: start: 2003
  9. COUMADIN                           /00014802/ [Concomitant]
     Indication: PRODUCT USED FOR UNKNOWN INDICATION
  10. BABY ASPIRIN [Concomitant]
     Indication: PRODUCT USED FOR UNKNOWN INDICATION

REACTIONS (20)
  - Cardiac failure congestive [Recovering/Resolving]
  - Pulmonary hypertension [Recovered/Resolved]
  - Pulmonary embolism [Recovering/Resolving]
  - Heart valve incompetence [Recovering/Resolving]
  - Pneumonia [Recovered/Resolved]
  - Ovarian cyst [Unknown]
  - Bladder injury [Recovered/Resolved]
  - Kidney infection [Recovered/Resolved]
  - Loss of consciousness [Recovered/Resolved]
  - Head injury [Recovering/Resolving]
  - Dysmenorrhoea [Recovering/Resolving]
  - Uterine haemorrhage [Unknown]
  - Sleep apnoea syndrome [Recovered/Resolved]
  - Urinary tract disorder [Recovered/Resolved]
  - Bladder disorder [Recovered/Resolved]
  - Incision site pain [Not Recovered/Not Resolved]
  - Post-traumatic stress disorder [Unknown]
  - Pain in extremity [Unknown]
  - Anaemia [Not Recovered/Not Resolved]
  - Injection site bruising [Not Recovered/Not Resolved]
